FAERS Safety Report 9345052 (Version 2)
Quarter: 2013Q3

REPORT INFORMATION
  Report Type: Report from Study
  Country: US (occurrence: US)
  Receive Date: 20130612
  Receipt Date: 20130730
  Transmission Date: 20140515
  Serious: Yes (Hospitalization)
  Sender: FDA-Public Use
  Company Number: US-PURDUE-USA-2013-0103185

PATIENT
  Age: 42 Year
  Sex: Female

DRUGS (13)
  1. DILAUDID TABLET [Suspect]
     Indication: ARTHRALGIA
     Dosage: 12 MG, SEE TEXT
     Dates: start: 20130419
  2. TAS-102 [Suspect]
     Indication: COLORECTAL CANCER
     Dosage: BLINDED THERAPY
     Route: 048
     Dates: start: 20130418, end: 20130429
  3. METHADONE [Suspect]
     Indication: ARTHRALGIA
     Dosage: 40 MG, SEE TEXT
     Dates: start: 20121116
  4. OMEPRAZOLE [Concomitant]
     Indication: DYSPEPSIA
     Dosage: UNK
     Dates: start: 20120110
  5. DOCUSATE SODIUM [Concomitant]
     Indication: CONSTIPATION PROPHYLAXIS
     Dosage: UNK
     Dates: start: 20120110
  6. POLYETHYLENE GLYCOL [Concomitant]
     Indication: CONSTIPATION PROPHYLAXIS
     Dosage: UNK
     Dates: start: 20120110
  7. SENNA                              /00142201/ [Concomitant]
     Indication: CONSTIPATION PROPHYLAXIS
     Dosage: UNK
     Dates: start: 20120201
  8. GABAPENTIN [Concomitant]
     Indication: PAIN
     Dosage: UNK
     Dates: start: 20120201
  9. DALTEPARIN [Concomitant]
     Indication: ANTICOAGULANT THERAPY
     Dosage: UNK
     Dates: start: 20120328
  10. DEXAMETHASONE [Concomitant]
     Indication: PROPHYLAXIS OF NAUSEA AND VOMITING
     Dosage: UNK
     Dates: start: 20121116
  11. FERROUS SULFATE [Concomitant]
     Indication: ANAEMIA
     Dosage: UNK
     Dates: start: 20121115
  12. NORTRIPTYLINE [Concomitant]
     Indication: MOOD DISORDER DUE TO A GENERAL MEDICAL CONDITION
     Dosage: UNK
     Dates: start: 20121215
  13. ONDANSETRON [Concomitant]
     Indication: PROPHYLAXIS OF NAUSEA AND VOMITING
     Dosage: UNK
     Dates: start: 20130416

REACTIONS (2)
  - Large intestinal obstruction [Recovered/Resolved]
  - Body temperature increased [Recovered/Resolved]
